FAERS Safety Report 8196441-X (Version None)
Quarter: 2012Q1

REPORT INFORMATION
  Report Type: 
  Country: None (occurrence: None)
  Receive Date: 20120309
  Receipt Date: 20120301
  Transmission Date: 20120608
  Serious: Yes (Other)
  Sender: FDA-Public Use
  Company Number: US-US-EMD SERONO, INC.-7116616

PATIENT
  Sex: Female

DRUGS (7)
  1. REBIF [Suspect]
     Indication: MULTIPLE SCLEROSIS
     Route: 058
     Dates: start: 20021118
  2. RANITIDINE [Concomitant]
     Indication: ABDOMINAL DISCOMFORT
  3. DILTIAZEM HCL [Concomitant]
     Indication: BLOOD PRESSURE
     Dosage: 120/24 MG
     Route: 048
  4. MORPHINE [Concomitant]
     Indication: PAIN
  5. SINEMET [Concomitant]
     Indication: RESTLESS LEGS SYNDROME
  6. PERCOCET [Concomitant]
     Indication: BREAKTHROUGH PAIN
     Dosage: 5/325 MG
  7. SINEMET [Concomitant]
     Route: 048

REACTIONS (3)
  - URINARY TRACT INFECTION [None]
  - EYE INFECTION BACTERIAL [None]
  - BURNING SENSATION [None]
